FAERS Safety Report 8821746 (Version 1)
Quarter: 2012Q4

REPORT INFORMATION
  Report Type: 
  Country: US (occurrence: US)
  Receive Date: 20121002
  Receipt Date: 20121002
  Transmission Date: 20130627
  Serious: Yes (Other)
  Sender: FDA-Public Use
  Company Number: US-MERCK-1210USA000538

PATIENT
  Age: 51 Year
  Sex: Female

DRUGS (7)
  1. JANUVIA [Suspect]
     Dosage: 1 DF, UNK
     Route: 048
  2. GLYBURIDE [Concomitant]
  3. ASPIRIN [Concomitant]
  4. ZOCOR [Concomitant]
     Route: 048
  5. LISINOPRIL [Concomitant]
  6. METFORMIN [Concomitant]
  7. AVANDIA [Concomitant]

REACTIONS (3)
  - Cellulitis [Unknown]
  - Blister [Unknown]
  - Leukocytoclastic vasculitis [Unknown]
